FAERS Safety Report 5382241-2 (Version None)
Quarter: 2007Q3

REPORT INFORMATION
  Report Type: 
  Country: None (occurrence: None)
  Receive Date: 20070709
  Receipt Date: 20070629
  Transmission Date: 20080115
  Serious: Yes (Hospitalization)
  Sender: FDA-Public Use
  Company Number: GB-PFIZER INC-2007054668

PATIENT
  Sex: Female

DRUGS (9)
  1. MACUGEN [Suspect]
     Indication: MACULAR DEGENERATION
     Route: 031
  2. SIMVASTATIN [Concomitant]
     Route: 048
  3. ASPIRIN [Concomitant]
     Route: 048
  4. TEMAZEPAM [Concomitant]
     Route: 048
  5. DOSULEPIN [Concomitant]
     Route: 048
  6. INDAPAMIDE [Concomitant]
     Route: 048
  7. OMEPRAZOLE [Concomitant]
     Route: 048
  8. NAPROXEN [Concomitant]
     Route: 048
  9. PARACETAMOL [Concomitant]
     Route: 048

REACTIONS (1)
  - DEEP VEIN THROMBOSIS [None]
